FAERS Safety Report 8180729-2 (Version None)
Quarter: 2012Q1

REPORT INFORMATION
  Report Type: 
  Country: None (occurrence: None)
  Receive Date: 20120301
  Receipt Date: 20120301
  Transmission Date: 20120608
  Serious: Yes (Other)
  Sender: FDA-Public Use
  Company Number: None

PATIENT
  Sex: Female
  Weight: 68.0396 kg

DRUGS (1)
  1. ABILIFY [Suspect]
     Indication: DEPRESSION
     Dosage: 30 QTY 1 TABLET DAILY
     Dates: start: 20100716, end: 20120216

REACTIONS (4)
  - EAR PAIN [None]
  - MUSCULOSKELETAL STIFFNESS [None]
  - FAECES DISCOLOURED [None]
  - WEIGHT INCREASED [None]
